FAERS Safety Report 4806953-1 (Version None)
Quarter: 2005Q4

REPORT INFORMATION
  Report Type: 
  Country: None (occurrence: None)
  Receive Date: 20051019
  Receipt Date: 20050930
  Transmission Date: 20060501
  Serious: Yes (Death, Other)
  Sender: FDA-Public Use
  Company Number: JP_051007750

PATIENT
  Age: 55 Year
  Sex: Female

DRUGS (3)
  1. GEMZAR [Suspect]
     Indication: PANCREATIC CARCINOMA
     Dosage: 800 MG/M2 OTHER
     Route: 050
     Dates: start: 20050817, end: 20050824
  2. ROCEPHIN [Concomitant]
  3. LAMIVUDINE [Concomitant]

REACTIONS (4)
  - BLOOD PRESSURE DECREASED [None]
  - BONE MARROW FAILURE [None]
  - DISSEMINATED INTRAVASCULAR COAGULATION [None]
  - RESPIRATORY FAILURE [None]
